FAERS Safety Report 23798626 (Version 4)
Quarter: 2024Q4

REPORT INFORMATION
  Report Type: Spontaneous
  Country: IT (occurrence: IT)
  Receive Date: 20240430
  Receipt Date: 20241231
  Transmission Date: 20250115
  Serious: Yes (Life-Threatening, Other)
  Sender: TEVA
  Company Number: IT-TEVA-VS-3190138

PATIENT
  Age: 20 Year
  Sex: Male

DRUGS (18)
  1. METHOTREXATE [Suspect]
     Active Substance: METHOTREXATE
     Indication: Haemophagocytic lymphohistiocytosis
     Route: 058
     Dates: start: 202007
  2. METHOTREXATE [Suspect]
     Active Substance: METHOTREXATE
     Indication: Haemophagocytic lymphohistiocytosis
     Route: 058
  3. CYCLOSPORINE [Suspect]
     Active Substance: CYCLOSPORINE
     Indication: Haemophagocytic lymphohistiocytosis
     Route: 065
  4. PREDNISONE [Suspect]
     Active Substance: PREDNISONE
     Indication: Haemophagocytic lymphohistiocytosis
     Route: 048
  5. PREDNISONE [Suspect]
     Active Substance: PREDNISONE
     Indication: Haemophagocytic lymphohistiocytosis
     Route: 065
     Dates: start: 202007
  6. BARICITINIB [Suspect]
     Active Substance: BARICITINIB
     Indication: Haemophagocytic lymphohistiocytosis
     Route: 048
  7. ANAKINRA [Suspect]
     Active Substance: ANAKINRA
     Indication: Haemophagocytic lymphohistiocytosis
     Route: 042
  8. NIRMATRELVIR\RITONAVIR [Concomitant]
     Active Substance: NIRMATRELVIR\RITONAVIR
     Indication: COVID-19
     Route: 065
  9. ADALIMUMAB [Suspect]
     Active Substance: ADALIMUMAB
     Indication: Haemophagocytic lymphohistiocytosis
     Route: 058
  10. ADALIMUMAB [Suspect]
     Active Substance: ADALIMUMAB
     Indication: Haemophagocytic lymphohistiocytosis
     Route: 058
  11. AZATHIOPRINE [Suspect]
     Active Substance: AZATHIOPRINE
     Indication: Haemophagocytic lymphohistiocytosis
     Route: 048
  12. ABATACEPT [Suspect]
     Active Substance: ABATACEPT
     Indication: Haemophagocytic lymphohistiocytosis
     Route: 042
  13. METHYLPREDNISOLONE [Suspect]
     Active Substance: METHYLPREDNISOLONE
     Indication: Haemophagocytic lymphohistiocytosis
     Route: 042
     Dates: start: 202202
  14. ETANERCEPT [Concomitant]
     Active Substance: ETANERCEPT
     Indication: Haemophagocytic lymphohistiocytosis
     Route: 058
  15. ENOXAPARIN [Concomitant]
     Active Substance: ENOXAPARIN
     Indication: Prophylaxis
     Route: 065
  16. THALIDOMIDE [Suspect]
     Active Substance: THALIDOMIDE
     Indication: Haemophagocytic lymphohistiocytosis
     Route: 048
  17. CANAKINUMAB [Concomitant]
     Active Substance: CANAKINUMAB
     Indication: Haemophagocytic lymphohistiocytosis
     Route: 065
  18. TOCILIZUMAB [Suspect]
     Active Substance: TOCILIZUMAB
     Indication: Haemophagocytic lymphohistiocytosis
     Route: 065

REACTIONS (9)
  - Drug ineffective [Unknown]
  - Osteoporosis [Unknown]
  - Sepsis [Unknown]
  - Varicella zoster virus infection [Unknown]
  - Cytomegalovirus infection reactivation [Unknown]
  - Oesophageal candidiasis [Unknown]
  - Pseudomonas infection [Unknown]
  - Drug hypersensitivity [Unknown]
  - Pneumocystis jirovecii pneumonia [Unknown]
